FAERS Safety Report 24530647 (Version 1)
Quarter: 2024Q4

REPORT INFORMATION
  Report Type: Spontaneous
  Country: US (occurrence: US)
  Receive Date: 20241021
  Receipt Date: 20241021
  Transmission Date: 20250115
  Serious: Yes (Other)
  Sender: PURDUE
  Company Number: US-PURDUE PHARMA-USA-2024-0312679

PATIENT
  Sex: Female

DRUGS (13)
  1. OXYCODONE HYDROCHLORIDE [Suspect]
     Active Substance: OXYCODONE HYDROCHLORIDE
     Indication: Pain
     Dosage: 15 MILLIGRAM, QID (15 MILLIGRAM 4 TIMES A DAY)
     Route: 065
  2. COVID-19 VACCINE NOS [Suspect]
     Active Substance: COVID-19 VACCINE
     Indication: Immunisation
     Dosage: 1ST DOSE
     Route: 065
     Dates: start: 20210105
  3. COVID-19 VACCINE NOS [Suspect]
     Active Substance: COVID-19 VACCINE
     Dosage: 2ND DOSE
     Route: 065
     Dates: start: 20210126
  4. COVID-19 VACCINE NOS [Suspect]
     Active Substance: COVID-19 VACCINE
     Dosage: 0.3 MILLILITER (3RD DOSE)
     Route: 030
     Dates: start: 20210914
  5. COVID-19 VACCINE NOS [Suspect]
     Active Substance: COVID-19 VACCINE
     Dosage: UNK (4TH DOSE)
     Route: 065
     Dates: start: 20241003
  6. COVID-19 VACCINE NOS [Suspect]
     Active Substance: COVID-19 VACCINE
     Dosage: 5TH DOSE
     Route: 065
  7. COVID-19 VACCINE NOS [Suspect]
     Active Substance: COVID-19 VACCINE
     Dosage: 6TH DOSE
     Route: 065
  8. ESTROGENS [Concomitant]
     Active Substance: ESTROGENS
     Indication: Product used for unknown indication
     Dosage: UNK
     Route: 065
  9. TESTOSTERONE [Concomitant]
     Active Substance: TESTOSTERONE
     Indication: Product used for unknown indication
     Dosage: UNK
     Route: 065
  10. PROGESTERONE [Concomitant]
     Active Substance: PROGESTERONE
     Indication: Product used for unknown indication
     Dosage: 100 MILLIGRAM
     Route: 065
  11. KETAMINE [Concomitant]
     Active Substance: KETAMINE
     Indication: Pain
     Dosage: UNK
     Route: 060
  12. PROPRANOLOL [Concomitant]
     Active Substance: PROPRANOLOL HYDROCHLORIDE
     Indication: Tremor
     Dosage: 10 MILLIGRAM
     Route: 065
  13. TRAZODONE [Concomitant]
     Active Substance: TRAZODONE HYDROCHLORIDE
     Indication: Sleep disorder
     Dosage: 25 MILLIGRAM
     Route: 065

REACTIONS (8)
  - Neuropathy peripheral [Unknown]
  - COVID-19 [Unknown]
  - Illness [Unknown]
  - Pain in extremity [Unknown]
  - Pain [Unknown]
  - Pyrexia [Unknown]
  - Adverse drug reaction [Unknown]
  - Inadequate analgesia [Unknown]
